FAERS Safety Report 10064889 (Version 2)
Quarter: 2016Q4

REPORT INFORMATION
  Report Type: Spontaneous
  Country: US (occurrence: US)
  Receive Date: 20140408
  Receipt Date: 20161004
  Transmission Date: 20170206
  Serious: Yes (Death, Life-Threatening, Hospitalization, Other)
  Sender: FDA-Public Use
  Company Number: US-009507513-1404USA003895

PATIENT
  Sex: Female
  Weight: 81.63 kg

DRUGS (2)
  1. JANUVIA [Suspect]
     Active Substance: SITAGLIPTIN PHOSPHATE
     Dosage: 100 MG, QD
     Route: 048
     Dates: start: 20120125, end: 20120521
  2. JANUVIA [Suspect]
     Active Substance: SITAGLIPTIN PHOSPHATE
     Indication: TYPE 2 DIABETES MELLITUS
     Dosage: 100 MG, QD
     Route: 048
     Dates: start: 20070716, end: 201201

REACTIONS (10)
  - Pancreatitis acute [Recovered/Resolved]
  - Fatigue [Unknown]
  - Pancreatic carcinoma [Fatal]
  - Retinal haemorrhage [Unknown]
  - Bile duct stenosis [Unknown]
  - Listless [Unknown]
  - Dry mouth [Not Recovered/Not Resolved]
  - Connective tissue disorder [Not Recovered/Not Resolved]
  - Hypoglycaemia [Recovered/Resolved]
  - Interstitial lung disease [Not Recovered/Not Resolved]

NARRATIVE: CASE EVENT DATE: 2011
